FAERS Safety Report 5940325-1 (Version None)
Quarter: 2008Q4

REPORT INFORMATION
  Report Type: 
  Country: None (occurrence: None)
  Receive Date: 20081104
  Receipt Date: 20081029
  Transmission Date: 20090506
  Serious: Yes (Other)
  Sender: FDA-Public Use
  Company Number: B0543793A

PATIENT
  Age: 8 Month
  Sex: Female

DRUGS (6)
  1. CLAVAMOX [Suspect]
     Indication: OTITIS MEDIA ACUTE
     Dosage: .6G TWICE PER DAY
     Route: 048
     Dates: start: 20081003, end: 20081005
  2. UNKNOWN DRUG [Concomitant]
     Route: 048
  3. MUCODYNE [Concomitant]
     Route: 048
  4. POLARAMINE [Concomitant]
     Route: 048
  5. BIOFERMIN R [Concomitant]
     Route: 048
  6. ANTIBIOTICS UNSPECIFIED [Concomitant]

REACTIONS (1)
  - DRUG ERUPTION [None]
